FAERS Safety Report 6466191-6 (Version None)
Quarter: 2009Q4

REPORT INFORMATION
  Report Type: 
  Country: None (occurrence: None)
  Receive Date: 20091202
  Receipt Date: 20091123
  Transmission Date: 20100525
  Serious: Yes (Hospitalization)
  Sender: FDA-Public Use
  Company Number: KR-ROCHE-599289

PATIENT
  Sex: Male
  Weight: 66.7 kg

DRUGS (5)
  1. CAPECITABINE [Suspect]
     Dosage: 1000MG/M2 P.O. TWICE DAILY ON A THREE WEEKS SCHEDULE. LAST CYCLE.
     Route: 048
     Dates: start: 20080619
  2. BEVACIZUMAB [Suspect]
     Dosage: 7.5 MG/KG I.V. GIVEN ON DAY 1 EVERY 3 WEEKS. LAST CYCLE.
     Route: 042
     Dates: start: 20080619
  3. MEDILAC-S [Concomitant]
     Dates: start: 20081120
  4. CRAVIT [Concomitant]
     Dates: start: 20081120
  5. TIROPA [Concomitant]
     Dates: start: 20081120

REACTIONS (1)
  - CALCULUS URETERIC [None]
